FAERS Safety Report 6117464-8 (Version None)
Quarter: 2009Q1

REPORT INFORMATION
  Report Type: 
  Country: None (occurrence: None)
  Receive Date: 20090314
  Receipt Date: 20090119
  Transmission Date: 20090719
  Serious: No
  Sender: FDA-Public Use
  Company Number: US-ABBOTT-09P-163-0498841-00

PATIENT
  Sex: Female
  Weight: 66.284 kg

DRUGS (7)
  1. HUMIRA [Suspect]
     Indication: RHEUMATOID ARTHRITIS
     Route: 058
     Dates: start: 20081101
  2. PREDNISONE [Concomitant]
     Indication: RHEUMATOID ARTHRITIS
     Dosage: 3 TABS PER DAY, BUT SOMETIMES MORE IF PAIN WORSE
  3. CORTISONE [Concomitant]
     Indication: RHEUMATOID ARTHRITIS
  4. CORTISONE [Concomitant]
     Indication: PAIN
  5. CORTISONE [Concomitant]
     Indication: SWELLING
  6. HYDROCHLOROCLINE [Concomitant]
     Indication: DRUG USE FOR UNKNOWN INDICATION
  7. EFFEXOR [Concomitant]
     Indication: DEPRESSION

REACTIONS (4)
  - ARTHRALGIA [None]
  - ENERGY INCREASED [None]
  - PAIN [None]
  - RHEUMATOID ARTHRITIS [None]
